FAERS Safety Report 5376102-2 (Version None)
Quarter: 2007Q3

REPORT INFORMATION
  Report Type: 
  Country: None (occurrence: None)
  Receive Date: 20070702
  Receipt Date: 20070628
  Transmission Date: 20080115
  Serious: Yes (Hospitalization)
  Sender: FDA-Public Use
  Company Number: A0660737A

PATIENT
  Age: 83 Year
  Sex: Male

DRUGS (11)
  1. AVANDIA [Suspect]
     Dosage: 4MG TWICE PER DAY
     Route: 048
     Dates: end: 20070520
  2. GLYBURIDE [Concomitant]
  3. METFORMIN HCL [Concomitant]
  4. SPIRIVA [Concomitant]
  5. CLONIDINE [Concomitant]
  6. ADVAIR DISKUS 100/50 [Concomitant]
  7. LIPITOR [Concomitant]
  8. PLAVIX [Concomitant]
  9. ZOLOFT [Concomitant]
  10. ASPIRIN [Concomitant]
  11. EYE DROPS [Concomitant]

REACTIONS (5)
  - CHEST PAIN [None]
  - HYPERTENSION [None]
  - IMPAIRED HEALING [None]
  - LIMB INJURY [None]
  - TOE AMPUTATION [None]
